FAERS Safety Report 8574151-4 (Version None)
Quarter: 2012Q3

REPORT INFORMATION
  Report Type: 
  Country: None (occurrence: None)
  Receive Date: 20120806
  Receipt Date: 20120724
  Transmission Date: 20120928
  Serious: Yes (Other)
  Sender: FDA-Public Use
  Company Number: JP-PFIZER INC-2012158908

PATIENT
  Age: 12 Year
  Sex: Male
  Weight: 46.9 kg

DRUGS (10)
  1. LISINOPRIL [Concomitant]
     Indication: PROTEINURIA
  2. PREDNISOLONE [Concomitant]
     Indication: GLOMERULONEPHRITIS MEMBRANOUS
     Dosage: UNK
     Route: 048
     Dates: start: 20080605, end: 20101110
  3. PREDNISOLONE [Concomitant]
     Indication: PROTEINURIA
  4. PREDNISOLONE [Concomitant]
     Indication: HAEMATURIA
  5. TRANSAMINE CAP [Concomitant]
     Indication: HAEMORRHAGE
     Dosage: 500 MG, 2X/DAY
     Route: 048
     Dates: start: 20031018
  6. ALFAROL [Concomitant]
     Dosage: 0.25 UG, 1X/DAY
     Route: 048
     Dates: start: 20080610, end: 20101110
  7. FAMOTIDINE [Concomitant]
     Dosage: 10 MG, 2X/DAY
     Route: 048
     Dates: start: 20080610, end: 20101110
  8. NONACOG ALFA [Suspect]
     Dosage: 2000 IU, 1X/DAY
     Route: 042
     Dates: start: 20100802
  9. LISINOPRIL [Concomitant]
     Indication: GLOMERULONEPHRITIS MEMBRANOUS
     Dosage: 10 MG, 1X/DAY
     Route: 048
     Dates: start: 20080504
  10. LISINOPRIL [Concomitant]
     Indication: HAEMATURIA

REACTIONS (1)
  - ANTI FACTOR IX ANTIBODY POSITIVE [None]
